FAERS Safety Report 7859957-9 (Version None)
Quarter: 2011Q4

REPORT INFORMATION
  Report Type: 
  Country: None (occurrence: None)
  Receive Date: 20111026
  Receipt Date: 20111026
  Transmission Date: 20120403
  Serious: Yes (Hospitalization)
  Sender: FDA-Public Use
  Company Number: None

PATIENT
  Sex: Male

DRUGS (2)
  1. TEV-TROPIN [Suspect]
     Indication: DWARFISM
     Dosage: 1.4MG DAILY SQ
     Route: 058
     Dates: start: 20110501, end: 20111001
  2. NORDIFLEX PEN 10MG/12.5ML NOVO NORDISK [Suspect]
     Indication: DWARFISM
     Dates: start: 20080711, end: 20110501

REACTIONS (2)
  - ABDOMINAL NEOPLASM [None]
  - NEPHRECTOMY [None]
